FAERS Safety Report 6809237-5 (Version None)
Quarter: 2010Q2

REPORT INFORMATION
  Report Type: 
  Country: None (occurrence: None)
  Receive Date: 20100625
  Receipt Date: 20100608
  Transmission Date: 20101027
  Serious: Yes (Life-Threatening, Other)
  Sender: FDA-Public Use
  Company Number: 20100261

PATIENT
  Age: 23 Year
  Sex: Female

DRUGS (4)
  1. EPINEPHRINE [Suspect]
     Indication: ANAPHYLACTIC REACTION
     Dosage: 1.0 MG (1:100 00)  X 2  INTRAVENOUS BOLUS
     Route: 040
  2. ANTIHISTAMINES [Concomitant]
  3. CORTICOSTEROIDS [Concomitant]
  4. INHALED EPINEPHRINE, RESPIRATORY [Concomitant]

REACTIONS (5)
  - CARDIOGENIC SHOCK [None]
  - CARDIOMYOPATHY [None]
  - DRUG PRESCRIBING ERROR [None]
  - OVERDOSE [None]
  - VENTRICULAR DYSFUNCTION [None]
